FAERS Safety Report 4455832-0 (Version None)
Quarter: 2004Q3

REPORT INFORMATION
  Report Type: 
  Country: None (occurrence: None)
  Receive Date: 20040920
  Receipt Date: 20040809
  Transmission Date: 20050211
  Serious: Yes (Disabling)
  Sender: FDA-Public Use
  Company Number: 20830

PATIENT
  Age: 69 Year
  Sex: Female
  Weight: 65.7716 kg

DRUGS (4)
  1. NIASPAN [Suspect]
     Indication: BLOOD CHOLESTEROL INCREASED
     Dosage: 1000 MG QHS PO
     Route: 048
     Dates: start: 20040501, end: 20040601
  2. FISH OIL [Concomitant]
  3. MULTI-VITAMIN [Concomitant]
  4. ASPIRIN [Concomitant]

REACTIONS (5)
  - CONTUSION [None]
  - DIFFICULTY IN WALKING [None]
  - FALL [None]
  - MUSCULAR WEAKNESS [None]
  - MYALGIA [None]
